FAERS Safety Report 14356245 (Version 1)
Quarter: 2018Q1

REPORT INFORMATION
  Report Type: Spontaneous
  Country: US (occurrence: US)
  Receive Date: 20180105
  Receipt Date: 20180105
  Transmission Date: 20180509
  Serious: No
  Sender: FDA-Public Use
  Company Number: US-ALLERGAN-1759523US

PATIENT
  Age: 44 Year
  Sex: Female

DRUGS (1)
  1. KYBELLA [Suspect]
     Active Substance: DEOXYCHOLIC ACID
     Indication: FAT TISSUE INCREASED
     Dosage: UNK UNK, SINGLE, 2 VIALS INJECTED PER SIDE
     Route: 058
     Dates: start: 20171012, end: 20171012

REACTIONS (5)
  - Blister [Recovering/Resolving]
  - Off label use [Unknown]
  - Wound secretion [Recovering/Resolving]
  - Dermatitis bullous [Recovered/Resolved]
  - Thermal burn [Recovering/Resolving]

NARRATIVE: CASE EVENT DATE: 20171012
